FAERS Safety Report 16631644 (Version 1)
Quarter: 2019Q3

REPORT INFORMATION
  Report Type: Spontaneous
  Country: US (occurrence: US)
  Receive Date: 20190613
  Receipt Date: 20190613
  Transmission Date: 20191004
  Serious: No
  Sender: FDA-Public Use
  Company Number: None

PATIENT

DRUGS (3)
  1. DEXAMETHASONE  DEXAMETHASONE SODIUM [Suspect]
     Active Substance: DEXAMETHASONE
     Route: 042
  2. DEXAMETHASONE DEXAMETHASONE SODIUM [Suspect]
     Active Substance: DEXAMETHASONE
     Route: 042
  3. FUROSEMIDE FUROSEMIDE [Suspect]
     Active Substance: FUROSEMIDE
     Route: 042

REACTIONS (1)
  - Product appearance confusion [None]
